FAERS Safety Report 23976780 (Version 3)
Quarter: 2024Q3

REPORT INFORMATION
  Report Type: Report from Study
  Country: CA (occurrence: CA)
  Receive Date: 20240614
  Receipt Date: 20240816
  Transmission Date: 20241017
  Serious: Yes (Hospitalization, Other)
  Sender: OTSUKA
  Company Number: CA-OTSUKA-2023_009956

PATIENT
  Age: 54 Year
  Sex: Male

DRUGS (1)
  1. ARIPIPRAZOLE [Suspect]
     Active Substance: ARIPIPRAZOLE
     Indication: Product used for unknown indication
     Dosage: 300 MG, EVERY 4 WEEKS
     Route: 030

REACTIONS (9)
  - Pulmonary oedema [Recovered/Resolved]
  - Arterial occlusive disease [Recovered/Resolved]
  - Bowel movement irregularity [Recovered/Resolved]
  - Dyspnoea [Recovered/Resolved]
  - Neglect of personal appearance [Not Recovered/Not Resolved]
  - Poor personal hygiene [Recovered/Resolved]
  - Poor personal hygiene [Not Recovered/Not Resolved]
  - Substance use [Not Recovered/Not Resolved]
  - Inappropriate schedule of product administration [Recovered/Resolved]

NARRATIVE: CASE EVENT DATE: 20230411
